FAERS Safety Report 20809432 (Version 1)
Quarter: 2022Q2

REPORT INFORMATION
  Report Type: Spontaneous
  Country: US (occurrence: US)
  Receive Date: 20220510
  Receipt Date: 20220510
  Transmission Date: 20220721
  Serious: No
  Sender: FDA-Public Use
  Company Number: US-ORGANON-O2205USA000528

PATIENT
  Sex: Female

DRUGS (1)
  1. GANIRELIX ACETATE [Suspect]
     Active Substance: GANIRELIX ACETATE
     Dosage: 250 MICROGRAM, QD, (STRENGTH: 250 MCG/ 0.5ML)
     Dates: start: 20220504, end: 20220504

REACTIONS (3)
  - Needle issue [Unknown]
  - Poor quality device used [Unknown]
  - No adverse event [Unknown]

NARRATIVE: CASE EVENT DATE: 20220504
